FAERS Safety Report 7854877-8 (Version None)
Quarter: 2011Q4

REPORT INFORMATION
  Report Type: 
  Country: None (occurrence: None)
  Receive Date: 20111026
  Receipt Date: 20111026
  Transmission Date: 20120403
  Serious: Yes (Hospitalization)
  Sender: FDA-Public Use
  Company Number: US-BAYER-2011-103980

PATIENT
  Age: 15 Year
  Sex: Female

DRUGS (3)
  1. TYLENOL-500 [Concomitant]
     Dosage: 12 TABLETS (= TO 6,000 MG APAP)
     Route: 048
  2. MIDOL MENSTRUAL COMPLETE CAPLETS [Suspect]
     Dosage: 30 TABLETS (= TO 15,000 MG APAP; 1,800 MG CAFFEINE; 450 MG PYRILAMINE)
     Route: 048
  3. IBUPROFEN (ADVIL) [Concomitant]
     Dosage: 6 TABLETS (= TO 1,200 MG IBUPROFEN)
     Route: 048

REACTIONS (2)
  - ELECTROCARDIOGRAM QT PROLONGED [None]
  - PALPITATIONS [None]
